FAERS Safety Report 10273033 (Version 1)
Quarter: 2014Q2

REPORT INFORMATION
  Report Type: Spontaneous
  Country: US (occurrence: None)
  Receive Date: 20140627
  Receipt Date: 20140627
  Transmission Date: 20141212
  Serious: Yes (Hospitalization)
  Sender: FDA-Public Use
  Company Number: None

PATIENT
  Age: 32 Year
  Sex: Male
  Weight: 109.1 kg

DRUGS (1)
  1. DISULFIRAM [Suspect]
     Route: 048
     Dates: start: 20140226, end: 20140302

REACTIONS (4)
  - Pruritus [None]
  - Rash [None]
  - Wheezing [None]
  - Dysphagia [None]
